FAERS Safety Report 15012016 (Version 1)
Quarter: 2018Q2

REPORT INFORMATION
  Report Type: Spontaneous
  Country: CA (occurrence: CA)
  Receive Date: 20180614
  Receipt Date: 20180614
  Transmission Date: 20180711
  Serious: Yes (Other)
  Sender: FDA-Public Use
  Company Number: CA-BAYER-2018-110856

PATIENT
  Age: 60 Year
  Sex: Male

DRUGS (1)
  1. ACETYLSALICYLIC ACID({=100 MG) [Suspect]
     Active Substance: ASPIRIN
     Dosage: 81 MG, QD

REACTIONS (5)
  - Visual field defect [Not Recovered/Not Resolved]
  - Retinal haemorrhage [None]
  - Retinal migraine [None]
  - Macular oedema [Recovering/Resolving]
  - Retinal artery occlusion [None]
